FAERS Safety Report 17270007 (Version 1)
Quarter: 2020Q1

REPORT INFORMATION
  Report Type: Report from Study
  Country: CA (occurrence: CA)
  Receive Date: 20200114
  Receipt Date: 20200114
  Transmission Date: 20200409
  Serious: Yes (Death, Hospitalization)
  Sender: FDA-Public Use
  Company Number: CA-PFIZER INC-2020013148

PATIENT
  Age: 85 Year
  Sex: Male

DRUGS (7)
  1. ARTHROTEC [Concomitant]
     Active Substance: DICLOFENAC SODIUM\MISOPROSTOL
     Dosage: 75 MG, 1X/DAY
     Route: 065
  2. COSENTYX [Suspect]
     Active Substance: SECUKINUMAB
     Indication: PSORIATIC ARTHROPATHY
     Dosage: 150 MG, UNK
     Route: 058
  3. IBUPROFEN/PSEUDOEPHEDRINE [Concomitant]
     Active Substance: IBUPROFEN\PSEUDOEPHEDRINE HYDROCHLORIDE
     Route: 065
  4. TYLENOL [Concomitant]
     Active Substance: ACETAMINOPHEN
     Dosage: 500 MG, UNK
     Route: 065
  5. METHOTREXATE SODIUM. [Suspect]
     Active Substance: METHOTREXATE SODIUM
     Dosage: 25 MG, WEEKLY
     Route: 065
  6. CICLOSPORIN [Suspect]
     Active Substance: CYCLOSPORINE
     Dosage: 100 MG, 2X/DAY
     Route: 065
  7. PLAQUENIL [Concomitant]
     Active Substance: HYDROXYCHLOROQUINE SULFATE
     Dosage: 200 MG, UNK
     Route: 065

REACTIONS (2)
  - Acute hepatic failure [Fatal]
  - Inappropriate schedule of product administration [Fatal]
